FAERS Safety Report 21444892 (Version 4)
Quarter: 2024Q1

REPORT INFORMATION
  Report Type: Report from Study
  Country: CO (occurrence: CO)
  Receive Date: 20221012
  Receipt Date: 20240318
  Transmission Date: 20240409
  Serious: Yes (Hospitalization, Other)
  Sender: FDA-Public Use
  Company Number: CO-VER-202200061

PATIENT
  Age: 7 Year
  Sex: Female

DRUGS (1)
  1. TRIPTORELIN [Suspect]
     Active Substance: TRIPTORELIN
     Indication: Precocious puberty
     Dosage: 0.125 MILLIGRAM(S) (11.25 MILLIGRAM(S), 1 IN 3 MONTH)
     Route: 030
     Dates: start: 20210902

REACTIONS (4)
  - Hypertonic bladder [Not Recovered/Not Resolved]
  - Ovarian enlargement [Not Recovered/Not Resolved]
  - Therapy cessation [Not Recovered/Not Resolved]
  - Insurance issue [Not Recovered/Not Resolved]

NARRATIVE: CASE EVENT DATE: 20220101
